FAERS Safety Report 6876912-6 (Version None)
Quarter: 2010Q3

REPORT INFORMATION
  Report Type: 
  Country: None (occurrence: None)
  Receive Date: 20100727
  Receipt Date: 20100727
  Transmission Date: 20110219
  Serious: Yes (Disabling, Other)
  Sender: FDA-Public Use
  Company Number: None

PATIENT
  Age: 67 Year
  Sex: Female
  Weight: 51 kg

DRUGS (2)
  1. AVASTIN [Suspect]
     Indication: BREAST CANCER STAGE III
     Dosage: 15 MG/KG EVERY 3 WEEKS IV
     Route: 042
     Dates: start: 20090507, end: 20100408
  2. HERCEPTIN [Suspect]
     Dosage: 6 MG/KG EVERY 3 WEEKS IV
     Route: 042

REACTIONS (1)
  - DEVICE FAILURE [None]
